FAERS Safety Report 17189734 (Version 1)
Quarter: 2019Q4

REPORT INFORMATION
  Report Type: Report from Study
  Country: None (occurrence: IE)
  Receive Date: 20191223
  Receipt Date: 20191223
  Transmission Date: 20200122
  Serious: Yes (Hospitalization)
  Sender: FDA-Public Use
  Company Number: IE-ABBVIE-19K-229-3200954-00

PATIENT
  Age: 0 Year
  Sex: Male

DRUGS (1)
  1. SYNAGIS [Suspect]
     Active Substance: PALIVIZUMAB
     Indication: LUNG DISORDER
     Dosage: SEASON 1
     Route: 030
     Dates: start: 20191119

REACTIONS (3)
  - Respiratory syncytial virus infection [Not Recovered/Not Resolved]
  - Product use in unapproved indication [Unknown]
  - Bronchiolitis [Not Recovered/Not Resolved]

NARRATIVE: CASE EVENT DATE: 2019
